FAERS Safety Report 5287069-X (Version None)
Quarter: 2007Q2

REPORT INFORMATION
  Report Type: 
  Country: None (occurrence: None)
  Receive Date: 20070404
  Receipt Date: 20070323
  Transmission Date: 20071010
  Serious: Yes (Other)
  Sender: FDA-Public Use
  Company Number: US-PFIZER INC-2006075304

PATIENT
  Sex: Female
  Weight: 77.1 kg

DRUGS (5)
  1. MEDROXYPROGESTERONE ACETATE [Suspect]
  2. ADVIL [Suspect]
     Indication: MUSCLE SPASMS
  3. SYNTHROID [Concomitant]
     Indication: THYROID DISORDER
     Route: 048
  4. METHOTREXATE [Concomitant]
     Indication: RHEUMATOID ARTHRITIS
     Route: 048
     Dates: start: 20050501
  5. REMICADE [Concomitant]
     Indication: RHEUMATOID ARTHRITIS
     Route: 042
     Dates: start: 20050501

REACTIONS (6)
  - DIZZINESS [None]
  - DRUG DISPENSING ERROR [None]
  - DYSMENORRHOEA [None]
  - HEART RATE DECREASED [None]
  - MENORRHAGIA [None]
  - UTERINE HAEMORRHAGE [None]
